FAERS Safety Report 6142663-9 (Version None)
Quarter: 2009Q2

REPORT INFORMATION
  Report Type: 
  Country: None (occurrence: None)
  Receive Date: 20090403
  Receipt Date: 20090331
  Transmission Date: 20091009
  Serious: Yes (Other)
  Sender: FDA-Public Use
  Company Number: CA-BAYER-200917124NA

PATIENT
  Age: 29 Year
  Sex: Female

DRUGS (1)
  1. MIRENA [Suspect]
     Indication: DRUG USE FOR UNKNOWN INDICATION
     Dosage: CONTINUOUS
     Route: 015
     Dates: start: 20090309, end: 20090323

REACTIONS (6)
  - DIZZINESS [None]
  - HYPOTENSION [None]
  - NAUSEA [None]
  - PAIN [None]
  - VAGINAL HAEMORRHAGE [None]
  - VOMITING [None]
